FAERS Safety Report 9603321 (Version 4)
Quarter: 2013Q4

REPORT INFORMATION
  Report Type: Report from Study
  Country: CA (occurrence: CA)
  Receive Date: 20131007
  Receipt Date: 20131031
  Transmission Date: 20140711
  Serious: Yes (Hospitalization)
  Sender: FDA-Public Use
  Company Number: CA-INCYTE CORPORATION-2013IN000457

PATIENT
  Sex: Female

DRUGS (9)
  1. JAKAVI [Suspect]
     Indication: MYELOFIBROSIS
     Dosage: UNK
     Route: 048
     Dates: start: 201212
  2. JAKAVI [Suspect]
     Dosage: 10 MG, QAM, 5 MG QPM
     Route: 048
     Dates: start: 20130114
  3. JAKAVI [Suspect]
     Dosage: 5 MG, BID
     Route: 048
  4. JAKAVI [Suspect]
     Dosage: 10 MG QAM, 5 MG QPM
     Route: 048
  5. JAKAVI [Suspect]
     Dosage: 5 MG, BID
     Route: 048
  6. JAKAVI [Suspect]
     Dosage: 5 MG, BID
     Route: 048
     Dates: end: 20130829
  7. ANTI-INFLAMMATORY [Concomitant]
  8. DICLOFENAC SODIUM [Concomitant]
  9. THYROID [Concomitant]

REACTIONS (20)
  - Chloroma [Unknown]
  - Activities of daily living impaired [Unknown]
  - Gait disturbance [Unknown]
  - Movement disorder [Unknown]
  - Hypersensitivity [Unknown]
  - White blood cell count increased [Recovered/Resolved]
  - Abscess neck [Recovered/Resolved]
  - Wound [Unknown]
  - Swollen tongue [Unknown]
  - Pharyngeal oedema [Unknown]
  - Eye swelling [Unknown]
  - Mouth ulceration [Unknown]
  - Aphagia [Unknown]
  - Dehydration [Unknown]
  - Weight decreased [Unknown]
  - Haemoglobin decreased [Not Recovered/Not Resolved]
  - Neutropenia [Unknown]
  - Red blood cell count decreased [Not Recovered/Not Resolved]
  - Splenomegaly [Unknown]
  - Platelet count decreased [Recovered/Resolved]
